FAERS Safety Report 4753152-8 (Version None)
Quarter: 2005Q3

REPORT INFORMATION
  Report Type: 
  Country: None (occurrence: None)
  Receive Date: 20050823
  Receipt Date: 20050810
  Transmission Date: 20060218
  Serious: Yes (Hospitalization)
  Sender: FDA-Public Use
  Company Number: EWC050644488

PATIENT
  Age: 70 Year
  Sex: Male
  Weight: 68 kg

DRUGS (14)
  1. PEMETREXED [Suspect]
     Indication: PLEURAL MESOTHELIOMA
     Dosage: 500 MG/M2 OTHER
     Route: 050
     Dates: start: 20050525
  2. CARBOPLATINE [Suspect]
     Indication: PLEURAL MESOTHELIOMA
     Dates: start: 20050525
  3. LASIX (FUROSEMIDE /00032601/) [Concomitant]
  4. TENORMIN [Concomitant]
  5. OMEPRAZOLE [Concomitant]
  6. ALLOPURINOL [Concomitant]
  7. DEANXIT [Concomitant]
  8. ALPRAZ (ALPRAZOLAM) [Concomitant]
  9. LORMETAZEPAM [Concomitant]
  10. CASODEX [Concomitant]
  11. AERIUS (DESLORATADINE) [Concomitant]
  12. FOLIC ACID [Concomitant]
  13. VITAMIN B-12 [Concomitant]
  14. DEXAMETHASONE [Concomitant]

REACTIONS (4)
  - ANAEMIA [None]
  - BLOOD LACTATE DEHYDROGENASE INCREASED [None]
  - CHOLECYSTITIS [None]
  - HYPOKALAEMIA [None]
